FAERS Safety Report 21474879 (Version 6)
Quarter: 2022Q4

REPORT INFORMATION
  Report Type: Spontaneous
  Country: US (occurrence: US)
  Receive Date: 20221018
  Receipt Date: 20221129
  Transmission Date: 20230113
  Serious: No
  Sender: FDA-Public Use
  Company Number: US-UNITED THERAPEUTICS-UNT-2022-024628

PATIENT
  Sex: Female
  Weight: 85.261 kg

DRUGS (7)
  1. TYVASO [Suspect]
     Active Substance: TREPROSTINIL
     Indication: Pulmonary arterial hypertension
     Dosage: UNK
     Dates: start: 20220603, end: 2022
  2. TYVASO [Suspect]
     Active Substance: TREPROSTINIL
     Dosage: 60 ?G, QID
     Dates: start: 2022, end: 2022
  3. TYVASO [Suspect]
     Active Substance: TREPROSTINIL
     Dosage: 54 ?G, QID
     Dates: start: 2022
  4. REMODULIN [Suspect]
     Active Substance: TREPROSTINIL
     Indication: Pulmonary arterial hypertension
     Dosage: UNK
     Route: 058
     Dates: start: 20220324
  5. REMODULIN [Suspect]
     Active Substance: TREPROSTINIL
     Dosage: 0.008 ?G/KG, CONTINUING
     Route: 058
     Dates: start: 2022
  6. REMODULIN [Suspect]
     Active Substance: TREPROSTINIL
     Dosage: 0.010 ?G/KG, CONTINUING
     Route: 058
     Dates: start: 2022
  7. SILDENAFIL CITRATE [Concomitant]
     Active Substance: SILDENAFIL CITRATE
     Indication: Product used for unknown indication
     Dosage: UNK
     Route: 065

REACTIONS (9)
  - Dyspnoea [Not Recovered/Not Resolved]
  - Cough [Recovered/Resolved]
  - Oropharyngeal pain [Recovered/Resolved]
  - Nocturnal dyspnoea [Recovered/Resolved]
  - Dizziness [Recovered/Resolved]
  - Vision blurred [Recovered/Resolved]
  - Drug intolerance [Recovered/Resolved]
  - Malaise [Recovered/Resolved]
  - Therapy non-responder [Unknown]

NARRATIVE: CASE EVENT DATE: 20220101
